FAERS Safety Report 6592083-8 (Version None)
Quarter: 2010Q1

REPORT INFORMATION
  Report Type: 
  Country: None (occurrence: None)
  Receive Date: 20100221
  Receipt Date: 20090827
  Transmission Date: 20100710
  Serious: No
  Sender: FDA-Public Use
  Company Number: US-ALLERGAN-0911985US

PATIENT

DRUGS (1)
  1. BOTOX COSMETIC [Suspect]
     Indication: HYPERHIDROSIS
     Dosage: 55 UNITS, SINGLE
     Route: 023
     Dates: start: 20090101, end: 20090101

REACTIONS (2)
  - EYELID OEDEMA [None]
  - EYELIDS PRURITUS [None]
